FAERS Safety Report 5028486-2 (Version None)
Quarter: 2006Q2

REPORT INFORMATION
  Report Type: 
  Country: None (occurrence: None)
  Receive Date: 20060617
  Receipt Date: 20060609
  Transmission Date: 20061013
  Serious: Yes (Other)
  Sender: FDA-Public Use
  Company Number: SE-GLAXOSMITHKLINE-B0427739A

PATIENT
  Sex: Male

DRUGS (2)
  1. LAMICTAL [Suspect]
     Indication: EPILEPSY
     Dosage: 400MG PER DAY
  2. EMCONCOR [Concomitant]

REACTIONS (2)
  - INTRAOCULAR PRESSURE INCREASED [None]
  - VISION BLURRED [None]
